FAERS Safety Report 7489970-5 (Version None)
Quarter: 2011Q2

REPORT INFORMATION
  Report Type: 
  Country: None (occurrence: None)
  Receive Date: 20110519
  Receipt Date: 20110506
  Transmission Date: 20111010
  Serious: Yes (Hospitalization, Other)
  Sender: FDA-Public Use
  Company Number: US-BAYER-201037627NA

PATIENT
  Age: 21 Year
  Sex: Female
  Weight: 104.31 kg

DRUGS (1)
  1. YASMIN [Suspect]
     Indication: ORAL CONTRACEPTION
     Dosage: 1 DF, QD
     Route: 048
     Dates: start: 20040101, end: 20070813

REACTIONS (3)
  - DEEP VEIN THROMBOSIS [None]
  - PULMONARY EMBOLISM [None]
  - PAIN IN EXTREMITY [None]
